FAERS Safety Report 6266927-3 (Version None)
Quarter: 2009Q3

REPORT INFORMATION
  Report Type: 
  Country: None (occurrence: None)
  Receive Date: 20090710
  Receipt Date: 20090710
  Transmission Date: 20100115
  Serious: Yes (Death)
  Sender: FDA-Public Use
  Company Number: None

PATIENT
  Sex: Male
  Weight: 100 kg

DRUGS (1)
  1. NEURONTIN [Suspect]
     Indication: ANTIDEPRESSANT THERAPY
     Dates: start: 20030401, end: 20041101

REACTIONS (2)
  - CARDIAC ARREST [None]
  - INSOMNIA [None]
